FAERS Safety Report 4536500-3 (Version None)
Quarter: 2004Q4

REPORT INFORMATION
  Report Type: 
  Country: None (occurrence: None)
  Receive Date: 20041222
  Receipt Date: 20041222
  Transmission Date: 20050328
  Serious: Yes (Other)
  Sender: FDA-Public Use
  Company Number: None

PATIENT
  Age: 20 Year
  Sex: Female
  Weight: 45.3597 kg

DRUGS (1)
  1. CORICIDIN HBP COUGH + COLD (CHLORPHENIRAMINE MAL/DEXTROMETHORPHAN HBR) [Suspect]
     Indication: INTENTIONAL MISUSE
     Dosage: 1-2 TABS PO ORAL
     Route: 048
     Dates: end: 20030701

REACTIONS (7)
  - CARDIAC DISORDER [None]
  - DRUG ABUSER [None]
  - DRUG WITHDRAWAL SYNDROME [None]
  - HEADACHE [None]
  - NAUSEA [None]
  - OVERDOSE [None]
  - TREMOR [None]
